FAERS Safety Report 25477584 (Version 1)
Quarter: 2025Q2

REPORT INFORMATION
  Report Type: Spontaneous
  Country: US (occurrence: US)
  Receive Date: 20250625
  Receipt Date: 20250625
  Transmission Date: 20250716
  Serious: No
  Sender: AMGEN
  Company Number: US-AMGEN-USASP2025124053

PATIENT
  Age: 23 Year
  Sex: Female

DRUGS (7)
  1. OTEZLA [Suspect]
     Active Substance: APREMILAST
     Indication: Behcet^s syndrome
     Dosage: 30 MILLIGRAM, BID
     Route: 048
     Dates: start: 20250529
  2. CLOBETASOL [Concomitant]
     Active Substance: CLOBETASOL
  3. FLUCONAZOLE [Concomitant]
     Active Substance: FLUCONAZOLE
  4. IBUPROFEN [Concomitant]
     Active Substance: IBUPROFEN
  5. LO LOESTRIN FE [Concomitant]
     Active Substance: ETHINYL ESTRADIOL\NORETHINDRONE ACETATE
  6. MELOXICAM [Concomitant]
     Active Substance: MELOXICAM
  7. MOMETASONE [Concomitant]
     Active Substance: MOMETASONE

REACTIONS (6)
  - Pain in extremity [Not Recovered/Not Resolved]
  - Gait disturbance [Not Recovered/Not Resolved]
  - Back pain [Not Recovered/Not Resolved]
  - Rash [Unknown]
  - Paraesthesia [Unknown]
  - Discomfort [Unknown]

NARRATIVE: CASE EVENT DATE: 20250101
